FAERS Safety Report 5312184-1 (Version None)
Quarter: 2007Q2

REPORT INFORMATION
  Report Type: 
  Country: None (occurrence: None)
  Receive Date: 20070430
  Receipt Date: 20060921
  Transmission Date: 20071010
  Serious: No
  Sender: FDA-Public Use
  Company Number: 2006UW18488

PATIENT
  Age: 56 Year
  Sex: Male
  Weight: 81.2 kg

DRUGS (6)
  1. NEXIUM [Suspect]
     Indication: CHEST PAIN
     Route: 048
     Dates: start: 20060815
  2. VITAMIN CAP [Concomitant]
  3. PEPCID AC [Concomitant]
  4. PEPPERMINT [Concomitant]
     Indication: STOMACH DISCOMFORT
  5. TUMS [Concomitant]
  6. ADVIL [Concomitant]

REACTIONS (5)
  - ABDOMINAL PAIN [None]
  - DISCOMFORT [None]
  - DRUG INEFFECTIVE [None]
  - HEADACHE [None]
  - WEIGHT DECREASED [None]
